FAERS Safety Report 21202597 (Version 1)
Quarter: 2022Q3

REPORT INFORMATION
  Report Type: Spontaneous
  Country: US (occurrence: None)
  Receive Date: 20220811
  Receipt Date: 20220811
  Transmission Date: 20221026
  Serious: Yes (Other)
  Sender: FDA-Public Use
  Company Number: None

PATIENT
  Age: 69 Year
  Sex: Male
  Weight: 92.25 kg

DRUGS (1)
  1. CEPHALEXIN [Suspect]
     Active Substance: CEPHALEXIN
     Indication: Mole excision
     Dosage: OTHER QUANTITY : 20 CAPSULE(S);?FREQUENCY : TWICE A DAY;?OTHER ROUTE : BY MOUTH;?
     Route: 050
     Dates: start: 20220622, end: 20220701

REACTIONS (4)
  - Arthralgia [None]
  - Pain in extremity [None]
  - Pain in extremity [None]
  - Osteoarthritis [None]

NARRATIVE: CASE EVENT DATE: 20220701
